FAERS Safety Report 5814569-3 (Version None)
Quarter: 2008Q3

REPORT INFORMATION
  Report Type: 
  Country: None (occurrence: None)
  Receive Date: 20080718
  Receipt Date: 20070926
  Transmission Date: 20090109
  Serious: No
  Sender: FDA-Public Use
  Company Number: US-KINGPHARMUSA00001-K200701252

PATIENT

DRUGS (2)
  1. LEVOXYL [Suspect]
     Indication: HYPOTHYROIDISM
     Dosage: ^75 MG^, QD
     Route: 048
     Dates: start: 20061101, end: 20070111
  2. LEVOXYL [Suspect]
     Dosage: ^125 MG^, QD
     Route: 048
     Dates: start: 20070111

REACTIONS (1)
  - TINNITUS [None]
